FAERS Safety Report 14352336 (Version 1)
Quarter: 2018Q1

REPORT INFORMATION
  Report Type: Spontaneous
  Country: NL (occurrence: NL)
  Receive Date: 20180104
  Receipt Date: 20180104
  Transmission Date: 20180509
  Serious: Yes (Congenital Anomaly)
  Sender: FDA-Public Use
  Company Number: NL-MYLANLABS-2018M1000209

PATIENT
  Sex: Male
  Weight: 1 kg

DRUGS (1)
  1. QUETIAPINE. [Suspect]
     Active Substance: QUETIAPINE
     Indication: PERSONALITY DISORDER
     Dosage: 50 MG, QD, 1 DD 50 MG
     Route: 064

REACTIONS (1)
  - Congenital aortic valve incompetence [Not Recovered/Not Resolved]
